FAERS Safety Report 4496955-X (Version None)
Quarter: 2004Q4

REPORT INFORMATION
  Report Type: 
  Country: None (occurrence: None)
  Receive Date: 20041109
  Receipt Date: 20041101
  Transmission Date: 20050328
  Serious: Yes (Life-Threatening, Hospitalization, Disabling)
  Sender: FDA-Public Use
  Company Number: US-MERCK-0411USA00306

PATIENT
  Age: 81 Year
  Sex: Female

DRUGS (8)
  1. VIOXX [Suspect]
     Indication: OSTEOARTHRITIS
     Route: 048
     Dates: start: 20020101, end: 20040101
  2. VIOXX [Suspect]
     Indication: SPONDYLITIS
     Route: 048
     Dates: start: 20020101, end: 20040101
  3. EXCEDRIN (MIGRAINE) [Concomitant]
     Route: 048
  4. IBUPROFEN [Concomitant]
     Route: 065
  5. CORTIZONE-5 [Concomitant]
     Route: 065
  6. DARVON [Concomitant]
     Route: 065
  7. PRINZIDE [Concomitant]
     Route: 065
  8. ADVIL [Concomitant]
     Route: 065

REACTIONS (3)
  - ARTERIAL OCCLUSIVE DISEASE [None]
  - CARDIAC DISORDER [None]
  - CORONARY ARTERY STENOSIS [None]
